FAERS Safety Report 15980981 (Version 1)
Quarter: 2019Q1

REPORT INFORMATION
  Report Type: Spontaneous
  Country: US (occurrence: US)
  Receive Date: 20190218
  Receipt Date: 20190218
  Transmission Date: 20190418
  Serious: Yes (Hospitalization)
  Sender: FDA-Public Use
  Company Number: None

PATIENT
  Sex: Female

DRUGS (4)
  1. CREON [Suspect]
     Active Substance: PANCRELIPASE AMYLASE\PANCRELIPASE LIPASE\PANCRELIPASE PROTEASE
     Indication: CYSTIC FIBROSIS
     Dosage: ?          OTHER FREQUENCY:TIDW MLS, BIDW SNA;?
     Route: 048
     Dates: start: 20161220
  2. MEROPENEM. [Concomitant]
     Active Substance: MEROPENEM
  3. TOBRAMYCIN. [Concomitant]
     Active Substance: TOBRAMYCIN
  4. VANCOMYCIN [Concomitant]
     Active Substance: VANCOMYCIN

REACTIONS (1)
  - Hospitalisation [None]
